FAERS Safety Report 8602536-6 (Version None)
Quarter: 2012Q3

REPORT INFORMATION
  Report Type: 
  Country: None (occurrence: None)
  Receive Date: 20120817
  Receipt Date: 20120813
  Transmission Date: 20120928
  Serious: Yes (Hospitalization, Other)
  Sender: FDA-Public Use
  Company Number: PHEH2012US015879

PATIENT
  Sex: Female

DRUGS (2)
  1. TOBI [Suspect]
     Indication: PNEUMONIA
     Dosage: 5 ML, BID
  2. CHEMOTHERAPEUTICS NOS [Concomitant]

REACTIONS (2)
  - PYREXIA [None]
  - CHRONIC LYMPHOCYTIC LEUKAEMIA [None]
